FAERS Safety Report 24314488 (Version 2)
Quarter: 2024Q3

REPORT INFORMATION
  Report Type: Spontaneous
  Country: US (occurrence: US)
  Receive Date: 20240913
  Receipt Date: 20240918
  Transmission Date: 20241017
  Serious: Yes (Other)
  Sender: ROCHE
  Company Number: US-ROCHE-10000073460

PATIENT
  Age: 77 Year
  Sex: Male

DRUGS (4)
  1. OBINUTUZUMAB [Suspect]
     Active Substance: OBINUTUZUMAB
     Indication: Chronic lymphocytic leukaemia
     Route: 065
  2. SALINE [Concomitant]
     Active Substance: SODIUM CHLORIDE
  3. VENETOCLAX [Concomitant]
     Active Substance: VENETOCLAX
  4. RASBURICASE [Concomitant]
     Active Substance: RASBURICASE
     Route: 042

REACTIONS (1)
  - Infusion related reaction [Unknown]
